FAERS Safety Report 13460901 (Version 3)
Quarter: 2023Q1

REPORT INFORMATION
  Report Type: Report from Study
  Country: BE (occurrence: None)
  Receive Date: 20170420
  Receipt Date: 20230127
  Transmission Date: 20230417
  Serious: Yes (Hospitalization)
  Sender: FDA-Public Use
  Company Number: BE-ROCHE-1220316

PATIENT
  Age: 42 Year
  Sex: Female
  Weight: 85.8 kg

DRUGS (104)
  1. OCRELIZUMAB [Suspect]
     Active Substance: OCRELIZUMAB
     Indication: Relapsing-remitting multiple sclerosis
     Dosage: LAST DOSE PRIOR TO SAE : 25/APR/2013. CYCLE 1 PATIENT RECEIVED A DUAL INFUSION OF OCRELIZUMAB SEPARA
     Route: 042
     Dates: start: 20121105, end: 20121105
  2. OCRELIZUMAB [Suspect]
     Active Substance: OCRELIZUMAB
     Dosage: WEEK 2
     Route: 042
     Dates: start: 20121120, end: 20121120
  3. OCRELIZUMAB [Suspect]
     Active Substance: OCRELIZUMAB
     Dosage: WEEK 24
     Route: 042
     Dates: start: 20130425, end: 20130425
  4. OCRELIZUMAB [Suspect]
     Active Substance: OCRELIZUMAB
     Dosage: WEEK 48
     Route: 042
     Dates: start: 20131022, end: 20131022
  5. OCRELIZUMAB [Suspect]
     Active Substance: OCRELIZUMAB
     Dosage: WEEK 72
     Route: 042
     Dates: start: 20140401, end: 20140401
  6. PLACEBO [Suspect]
     Active Substance: UNSPECIFIED INGREDIENT
     Indication: Relapsing-remitting multiple sclerosis
     Dosage: LAST DOSE PRIOR TO SAE: 24/APR/2013.
     Route: 058
     Dates: start: 20121105, end: 20121120
  7. PLACEBO [Suspect]
     Active Substance: UNSPECIFIED INGREDIENT
     Route: 058
     Dates: start: 20121105, end: 20121105
  8. OCRELIZUMAB [Suspect]
     Active Substance: OCRELIZUMAB
     Indication: Relapsing-remitting multiple sclerosis
     Dosage: OLE-WEEK 0
     Route: 042
     Dates: start: 20140930, end: 20140930
  9. OCRELIZUMAB [Suspect]
     Active Substance: OCRELIZUMAB
     Dosage: OLE-WEEK 2
     Route: 042
     Dates: start: 20141014, end: 20141014
  10. OCRELIZUMAB [Suspect]
     Active Substance: OCRELIZUMAB
     Route: 042
     Dates: start: 20150312, end: 20150312
  11. OCRELIZUMAB [Suspect]
     Active Substance: OCRELIZUMAB
     Dosage: OLE-WEEK 48
     Route: 042
     Dates: start: 20150903, end: 20150903
  12. OCRELIZUMAB [Suspect]
     Active Substance: OCRELIZUMAB
     Dosage: OLE-WEEK 72
     Route: 042
     Dates: start: 20160218, end: 20160218
  13. OCRELIZUMAB [Suspect]
     Active Substance: OCRELIZUMAB
     Dosage: OLE-WEEK 96
     Route: 042
     Dates: start: 20160804, end: 20160804
  14. OCRELIZUMAB [Suspect]
     Active Substance: OCRELIZUMAB
     Dosage: OLE-WEEK 120
     Route: 042
     Dates: start: 20170119, end: 20170119
  15. OCRELIZUMAB [Suspect]
     Active Substance: OCRELIZUMAB
     Dosage: OLE-WEEK 120
     Route: 042
     Dates: start: 20170119, end: 20170119
  16. OCRELIZUMAB [Suspect]
     Active Substance: OCRELIZUMAB
     Dosage: OLE-WEEK 144
     Route: 042
     Dates: start: 20170706, end: 20170706
  17. OCRELIZUMAB [Suspect]
     Active Substance: OCRELIZUMAB
     Dosage: OLE-WEEK 168
     Route: 042
     Dates: start: 20171221, end: 20171221
  18. OCRELIZUMAB [Suspect]
     Active Substance: OCRELIZUMAB
     Dosage: OLE-WEEK 192
     Route: 042
     Dates: start: 20180604, end: 20180604
  19. OCRELIZUMAB [Suspect]
     Active Substance: OCRELIZUMAB
     Dosage: OLE-WEEK 216
     Route: 042
     Dates: start: 20181122, end: 20181122
  20. OCRELIZUMAB [Suspect]
     Active Substance: OCRELIZUMAB
     Dosage: OLE-WEEK 240
     Route: 042
     Dates: start: 20190514, end: 20190514
  21. OCRELIZUMAB [Suspect]
     Active Substance: OCRELIZUMAB
     Dosage: OLE-WEEK 264
     Route: 042
     Dates: start: 20191024, end: 20191024
  22. OCRELIZUMAB [Suspect]
     Active Substance: OCRELIZUMAB
     Dosage: OLE-WEEK 288
     Route: 042
     Dates: start: 20200402, end: 20200402
  23. OCRELIZUMAB [Suspect]
     Active Substance: OCRELIZUMAB
     Dosage: OLE-WEEK 312
     Route: 042
     Dates: start: 20201006, end: 20201006
  24. OCRELIZUMAB [Suspect]
     Active Substance: OCRELIZUMAB
     Dosage: OLE-WEEK 336
     Route: 042
     Dates: start: 20210323, end: 20210323
  25. OCRELIZUMAB [Suspect]
     Active Substance: OCRELIZUMAB
     Dosage: OLE-WEEK 360
     Route: 042
     Dates: start: 20210913, end: 20210913
  26. OCRELIZUMAB [Suspect]
     Active Substance: OCRELIZUMAB
     Dosage: OLE-WEEK 384
     Route: 042
     Dates: start: 20220303, end: 20220303
  27. OCRELIZUMAB [Suspect]
     Active Substance: OCRELIZUMAB
     Dosage: OLE-WEEK 408
     Route: 042
     Dates: start: 20220805, end: 20220805
  28. CETIRIZINE [Concomitant]
     Active Substance: CETIRIZINE HYDROCHLORIDE
     Indication: Premedication
     Dates: start: 20121105
  29. ACETAMINOPHEN [Concomitant]
     Active Substance: ACETAMINOPHEN
     Indication: Premedication
     Dates: start: 20121105
  30. METHYLPREDNISOLONE [Concomitant]
     Active Substance: METHYLPREDNISOLONE
     Indication: Premedication
     Dates: start: 20121105
  31. METHYLPREDNISOLONE [Concomitant]
     Active Substance: METHYLPREDNISOLONE
     Dates: start: 201201, end: 201201
  32. OXYBUTYNIN [Concomitant]
     Active Substance: OXYBUTYNIN
     Dates: start: 2007
  33. HYGROTON [Concomitant]
     Active Substance: CHLORTHALIDONE
     Dates: start: 201202, end: 201212
  34. BEFACT FORTE [Concomitant]
     Dosage: B2: 10 MG, B1 250 MG, B6 250 MG AND B12 0.02 MG
     Dates: start: 2008
  35. DAFALGAN [Concomitant]
     Active Substance: ACETAMINOPHEN
     Dates: start: 20121110, end: 20121112
  36. ZOVIRAX [Concomitant]
     Active Substance: ACYCLOVIR
     Dates: start: 20130101, end: 20130110
  37. ZOVIRAX [Concomitant]
     Active Substance: ACYCLOVIR
     Dates: start: 20130325
  38. CLARITHROMYCIN [Concomitant]
     Active Substance: CLARITHROMYCIN
     Dates: start: 20130225, end: 201303
  39. NITROFURANTOIN [Concomitant]
     Active Substance: NITROFURANTOIN
     Dates: start: 20130319, end: 201303
  40. FLUCONAZOLE [Concomitant]
     Active Substance: FLUCONAZOLE
     Dates: start: 201305, end: 201305
  41. IBUPROFEN [Concomitant]
     Active Substance: IBUPROFEN
     Dates: start: 201411, end: 20141203
  42. MERCILON [Concomitant]
     Active Substance: DESOGESTREL\ETHINYL ESTRADIOL
     Dates: start: 201209
  43. REBIF [Concomitant]
     Active Substance: INTERFERON BETA-1A
     Dates: start: 2003, end: 20121104
  44. CIPROFLOXACIN [Concomitant]
     Active Substance: CIPROFLOXACIN
     Dates: start: 20130503, end: 20130509
  45. PANOTILE [Concomitant]
     Dates: start: 20191203, end: 20191217
  46. MOMETASONE [Concomitant]
     Active Substance: MOMETASONE
     Dates: start: 20200108, end: 20200205
  47. CLINDAMYCIN [Concomitant]
     Active Substance: CLINDAMYCIN
     Dates: start: 20200131, end: 20200204
  48. LYSOTOSSIL [Concomitant]
  49. CLINDAMYCIN [Concomitant]
     Active Substance: CLINDAMYCIN
  50. FRAMYCETIN SULFATE\NAPHAZOLINE NITRATE\PREDNISOLONE ACETATE [Concomitant]
     Active Substance: FRAMYCETIN SULFATE\NAPHAZOLINE NITRATE\PREDNISOLONE ACETATE
  51. INFLUENZA VIRUS VACCINE [Concomitant]
     Active Substance: INFLUENZA VIRUS VACCINE
  52. NITROFURANTOIN [Concomitant]
     Active Substance: NITROFURANTOIN
  53. ALIZAPRIDE HYDROCHLORIDE [Concomitant]
     Active Substance: ALIZAPRIDE HYDROCHLORIDE
  54. TRAMADOL HYDROCHLORIDE [Concomitant]
     Active Substance: TRAMADOL HYDROCHLORIDE
  55. POTASSIUM CHLORIDE [Concomitant]
     Active Substance: POTASSIUM CHLORIDE
  56. ACETAMINOPHEN [Concomitant]
     Active Substance: ACETAMINOPHEN
  57. LEVOFLOXACIN [Concomitant]
     Active Substance: LEVOFLOXACIN
  58. ORNIDAZOLE [Concomitant]
     Active Substance: ORNIDAZOLE
  59. PANTOPRAZOLE SODIUM [Concomitant]
     Active Substance: PANTOPRAZOLE SODIUM
  60. FLAMIGEL [Concomitant]
  61. NYSTATINE LABAZ [Concomitant]
  62. VALIUM [Concomitant]
     Active Substance: DIAZEPAM
  63. ELECTROLYTES NOS [Concomitant]
     Active Substance: ELECTROLYTES NOS
  64. PROPOFOL [Concomitant]
     Active Substance: PROPOFOL
  65. ROCURONIUM [Concomitant]
     Active Substance: ROCURONIUM BROMIDE
  66. SUFENTA [Concomitant]
     Active Substance: SUFENTANIL CITRATE
     Indication: Intervertebral disc protrusion
     Dates: start: 20170801, end: 20170801
  67. KETOROLAC TROMETHAMINE [Concomitant]
     Active Substance: KETOROLAC TROMETHAMINE
     Indication: Intervertebral disc protrusion
     Dates: start: 20170801, end: 20170801
  68. ACETAMINOPHEN [Concomitant]
     Active Substance: ACETAMINOPHEN
     Indication: Intervertebral disc protrusion
     Dates: start: 20170525, end: 20170529
  69. TRAMADOL [Concomitant]
     Active Substance: TRAMADOL
     Indication: Intervertebral disc protrusion
     Dates: start: 20170528, end: 20170801
  70. LIDOCAINE [Concomitant]
     Active Substance: LIDOCAINE
     Indication: Intervertebral disc protrusion
  71. METHYLPREDNISOLONE [Concomitant]
     Active Substance: METHYLPREDNISOLONE
     Indication: Intervertebral disc protrusion
  72. ACYCLOVIR [Concomitant]
     Active Substance: ACYCLOVIR
     Indication: Oral herpes
     Dates: start: 20200227, end: 202003
  73. ACETYLCYSTEINE [Concomitant]
     Active Substance: ACETYLCYSTEINE
     Indication: Nasopharyngitis
  74. XYLOMETAZOLINE HYDROCHLORIDE [Concomitant]
     Active Substance: XYLOMETAZOLINE HYDROCHLORIDE
     Indication: Nasopharyngitis
     Dates: start: 20161207, end: 20161218
  75. STREPSILS (BELGIUM) [Concomitant]
  76. ATROVENT [Concomitant]
     Active Substance: IPRATROPIUM BROMIDE
     Indication: Nasopharyngitis
     Dates: start: 20190925, end: 20190928
  77. DEXA-RHINOSPRAY [Concomitant]
     Indication: Nasopharyngitis
     Dates: start: 20190925, end: 20190928
  78. MOXIFLOXACIN [Concomitant]
     Active Substance: MOXIFLOXACIN
     Indication: Cough
     Dates: start: 20160330, end: 20160408
  79. FUCICORT LIPID [Concomitant]
     Indication: Eczema
     Dates: start: 202201, end: 202202
  80. FRAMYCETIN SULFATE\NAPHAZOLINE NITRATE\PREDNISOLONE ACETATE [Concomitant]
     Active Substance: FRAMYCETIN SULFATE\NAPHAZOLINE NITRATE\PREDNISOLONE ACETATE
  81. MOMETASONE [Concomitant]
     Active Substance: MOMETASONE
     Indication: Deafness
  82. ZOVIRAX [Concomitant]
     Active Substance: ACYCLOVIR
     Indication: Oral herpes
     Dosage: 01/JAN/2013, 10/JAN/2013
     Dates: start: 201812, end: 201812
  83. HYGROTON [Concomitant]
     Active Substance: CHLORTHALIDONE
     Indication: Hypertension
     Dosage: /FEB/2014, /DEC/2012
     Dates: start: 201407, end: 20160228
  84. LISINOPRIL [Concomitant]
     Active Substance: LISINOPRIL
     Indication: Hypertension
     Dates: start: 20160229
  85. CHOLECALCIFEROL [Concomitant]
     Active Substance: CHOLECALCIFEROL
     Indication: Vitamin D deficiency
     Dates: start: 20170120, end: 20170124
  86. LORMETAZEPAM [Concomitant]
     Active Substance: LORMETAZEPAM
     Indication: Insomnia
  87. RIVOTRIL [Concomitant]
     Active Substance: CLONAZEPAM
     Indication: Muscle spasms
     Dates: start: 20220722
  88. SOLU-MEDROL [Concomitant]
     Active Substance: METHYLPREDNISOLONE SODIUM SUCCINATE
     Dates: start: 20220124, end: 20220128
  89. TRAMADOL [Concomitant]
     Active Substance: TRAMADOL
  90. MOVICOL [Concomitant]
     Active Substance: POLYETHYLENE GLYCOL 3350\POTASSIUM CHLORIDE\SODIUM BICARBONATE\SODIUM CHLORIDE
     Indication: Constipation
     Dates: start: 20151202
  91. MERCILON [Concomitant]
     Active Substance: DESOGESTREL\ETHINYL ESTRADIOL
     Indication: Oral contraception
     Dates: start: 201209, end: 2017
  92. CLARITHROMYCIN [Concomitant]
     Active Substance: CLARITHROMYCIN
     Indication: Ear infection
     Dates: start: 20130225, end: 201303
  93. AZITHROMYCIN [Concomitant]
     Active Substance: AZITHROMYCIN
     Indication: Ear infection
     Dates: start: 20181226, end: 20181226
  94. PANTOPRAZOLE [Concomitant]
     Active Substance: PANTOPRAZOLE
     Dates: start: 20220124, end: 20220128
  95. ZANTAC [Concomitant]
     Active Substance: RANITIDINE HYDROCHLORIDE
     Dates: start: 20170523, end: 20170529
  96. NADROPARIN CALCIUM [Concomitant]
     Active Substance: NADROPARIN CALCIUM
  97. FOSFOMYCIN TROMETHAMINE [Concomitant]
     Active Substance: FOSFOMYCIN TROMETHAMINE
  98. FLUCONAZOLE [Concomitant]
     Active Substance: FLUCONAZOLE
  99. NITROFURANTOIN [Concomitant]
     Active Substance: NITROFURANTOIN
  100. ATROVENT [Concomitant]
     Active Substance: IPRATROPIUM BROMIDE
     Indication: Sinusitis
  101. FRAMYCETIN SULFATE\NAPHAZOLINE NITRATE\PREDNISOLONE ACETATE [Concomitant]
     Active Substance: FRAMYCETIN SULFATE\NAPHAZOLINE NITRATE\PREDNISOLONE ACETATE
     Dates: start: 20190411, end: 20190415
  102. GYNO DAKTARIN [Concomitant]
     Indication: Vulvovaginal mycotic infection
  103. MICONAZOLE NITRATE [Concomitant]
     Active Substance: MICONAZOLE NITRATE
     Indication: Vaginal infection
     Dates: start: 201305, end: 201306
  104. FLUCONAZOLE [Concomitant]
     Active Substance: FLUCONAZOLE
     Indication: Vaginal infection

REACTIONS (1)
  - Pyelonephritis [Recovered/Resolved]

NARRATIVE: CASE EVENT DATE: 20130429
